FAERS Safety Report 4747461-6 (Version None)
Quarter: 2005Q3

REPORT INFORMATION
  Report Type: 
  Country: None (occurrence: None)
  Receive Date: 20050815
  Receipt Date: 20050531
  Transmission Date: 20060218
  Serious: No
  Sender: FDA-Public Use
  Company Number: USA050496867

PATIENT
  Age: 30 Year
  Sex: Male

DRUGS (2)
  1. CIALIS [Suspect]
  2. EFFEXOR [Concomitant]

REACTIONS (1)
  - PRIAPISM [None]
